FAERS Safety Report 10250631 (Version 1)
Quarter: 2014Q2

REPORT INFORMATION
  Report Type: Spontaneous
  Country: DE (occurrence: DE)
  Receive Date: 20140620
  Receipt Date: 20140620
  Transmission Date: 20141212
  Serious: Yes (Congenital Anomaly)
  Sender: FDA-Public Use
  Company Number: DE-TEVA-488213GER

PATIENT
  Sex: Female

DRUGS (3)
  1. VALPROINSAEURE-RATIOPHARM [Suspect]
     Route: 064
  2. VALPROINSAEURE-RATIOPHARM [Suspect]
     Route: 064
  3. FOLSAEURE [Concomitant]

REACTIONS (3)
  - Language disorder [Not Recovered/Not Resolved]
  - Foetal exposure during pregnancy [Unknown]
  - Foetal exposure during pregnancy [None]
